FAERS Safety Report 9358144 (Version 1)
Quarter: 2013Q2

REPORT INFORMATION
  Report Type: Spontaneous
  Country: US (occurrence: US)
  Receive Date: 20130620
  Receipt Date: 20130620
  Transmission Date: 20140414
  Serious: No
  Sender: FDA-Public Use
  Company Number: US-PFIZER INC-2013181147

PATIENT
  Age: 20 Year
  Sex: Female
  Weight: 58.96 kg

DRUGS (2)
  1. FLAGYL [Suspect]
     Indication: GIARDIASIS
     Dosage: 500 MG, 3X/DAY
     Dates: start: 201306
  2. AMOXICILLIN [Suspect]
     Dosage: 500 MG, 3X/DAY
     Dates: start: 201306, end: 201306

REACTIONS (4)
  - Dysuria [Not Recovered/Not Resolved]
  - Chromaturia [Not Recovered/Not Resolved]
  - Haematuria [Not Recovered/Not Resolved]
  - Leukocyturia [Not Recovered/Not Resolved]
